FAERS Safety Report 15322620 (Version 1)
Quarter: 2018Q3

REPORT INFORMATION
  Report Type: Spontaneous
  Country: US (occurrence: US)
  Receive Date: 20180827
  Receipt Date: 20180827
  Transmission Date: 20181010
  Serious: Yes (Hospitalization)
  Sender: FDA-Public Use
  Company Number: US-JNJFOC-20180834733

PATIENT
  Age: 77 Year
  Sex: Male

DRUGS (2)
  1. IMBRUVICA [Suspect]
     Active Substance: IBRUTINIB
     Indication: CHRONIC LYMPHOCYTIC LEUKAEMIA
     Route: 048
     Dates: start: 20171222
  2. IMBRUVICA [Suspect]
     Active Substance: IBRUTINIB
     Indication: CHRONIC LYMPHOCYTIC LEUKAEMIA
     Route: 048
     Dates: start: 201803

REACTIONS (7)
  - Pneumonia viral [Recovering/Resolving]
  - Mental status changes [Recovering/Resolving]
  - Sinus disorder [Recovering/Resolving]
  - Hypertension [Recovering/Resolving]
  - Pneumonia pseudomonal [Recovering/Resolving]
  - Gait disturbance [Recovering/Resolving]
  - Mastoid effusion [Recovering/Resolving]

NARRATIVE: CASE EVENT DATE: 201803
